FAERS Safety Report 12593198 (Version 2)
Quarter: 2021Q3

REPORT INFORMATION
  Report Type: Spontaneous
  Country: US (occurrence: US)
  Receive Date: 20160726
  Receipt Date: 20210727
  Transmission Date: 20211014
  Serious: No
  Sender: FDA-Public Use
  Company Number: US-ABBVIE-16P-163-1569078-00

PATIENT
  Sex: Female
  Weight: 52.62 kg

DRUGS (4)
  1. NVALIUM [Concomitant]
     Indication: SEIZURE
     Dosage: 5/8TH TEASPOON THREE TIMES A DAY BY MOUTH
     Route: 048
  2. DILANTIN?125 [Suspect]
     Active Substance: PHENYTOIN
     Indication: SEIZURE
     Dosage: 5/8TH OF A TEASPOON THREE TIMES A DAY BY MOUTH?FOA SUSPENSION
     Route: 048
  3. SYNTHROID [Suspect]
     Active Substance: LEVOTHYROXINE SODIUM
     Indication: THYROID DISORDER
     Dosage: 1.5 BY MOUTH A DAY
     Route: 048
  4. SYNTHROID [Suspect]
     Active Substance: LEVOTHYROXINE SODIUM
     Route: 048
     Dates: start: 2010

REACTIONS (10)
  - Thyroid operation [Recovered/Resolved with Sequelae]
  - Product container issue [Not Recovered/Not Resolved]
  - Drug hypersensitivity [Not Recovered/Not Resolved]
  - Allergy to plants [Unknown]
  - Dermatitis allergic [Recovered/Resolved]
  - Product use complaint [Not Recovered/Not Resolved]
  - Autoimmune thyroiditis [Recovering/Resolving]
  - Reaction to excipient [Not Recovered/Not Resolved]
  - Rubber sensitivity [Unknown]
  - Urticaria [Unknown]

NARRATIVE: CASE EVENT DATE: 2006
